FAERS Safety Report 20166104 (Version 1)
Quarter: 2021Q4

REPORT INFORMATION
  Report Type: Report from Study
  Country: DE (occurrence: DE)
  Receive Date: 20211209
  Receipt Date: 20211209
  Transmission Date: 20220303
  Serious: Yes (Hospitalization, Other)
  Sender: FDA-Public Use
  Company Number: DE-ROCHE-2082700

PATIENT
  Age: 57 Year
  Sex: Male

DRUGS (17)
  1. PREGABALIN [Suspect]
     Active Substance: PREGABALIN
     Dosage: UNK
     Route: 065
  2. OCREVUS [Suspect]
     Active Substance: OCRELIZUMAB
     Indication: Relapsing-remitting multiple sclerosis
     Dosage: FREQ:188 D
     Route: 042
     Dates: start: 20201014
  3. OCREVUS [Suspect]
     Active Substance: OCRELIZUMAB
     Indication: Primary progressive multiple sclerosis
     Dosage: UNK
     Route: 042
     Dates: start: 20180308
  4. OCREVUS [Suspect]
     Active Substance: OCRELIZUMAB
     Dosage: FREQ:2 WK
     Route: 042
     Dates: start: 20180222
  5. OCREVUS [Suspect]
     Active Substance: OCRELIZUMAB
     Dosage: 600 MG
     Route: 042
     Dates: start: 20180913, end: 20180913
  6. OCREVUS [Suspect]
     Active Substance: OCRELIZUMAB
     Dosage: 600 MG
     Route: 042
     Dates: start: 20190902
  7. OCREVUS [Suspect]
     Active Substance: OCRELIZUMAB
     Dosage: 600 MG
     Route: 042
     Dates: start: 20190315
  8. OCREVUS [Suspect]
     Active Substance: OCRELIZUMAB
     Dosage: 600 MG
     Route: 042
     Dates: start: 20200218
  9. CORTISONE [Suspect]
     Active Substance: CORTISONE
     Dosage: 1000 MG, 1X/DAY
     Route: 042
     Dates: start: 20200206, end: 20200210
  10. CORTISONE [Suspect]
     Active Substance: CORTISONE
     Dosage: UNK
     Route: 037
     Dates: start: 20211025, end: 20211108
  11. DIMETHINDENE [Suspect]
     Active Substance: DIMETHINDENE
     Dosage: UNK
     Route: 065
  12. IBUPROFEN [Concomitant]
     Active Substance: IBUPROFEN
  13. DULOXETINE [Concomitant]
     Active Substance: DULOXETINE
     Dosage: 1-0-1
  14. BACLOFEN [Concomitant]
     Active Substance: BACLOFEN
     Indication: Muscle spasticity
     Dosage: FREQ:.33 D;1-1-1
     Route: 048
  15. BACLOFEN [Concomitant]
     Active Substance: BACLOFEN
     Dosage: FREQ:.33 D;ADMINISTRATION ON ONE DAY EVERY 2 WEEKS
  16. BACLOFEN [Concomitant]
     Active Substance: BACLOFEN
     Dosage: FREQ:.33 D;1-1-1
     Route: 048
  17. BOTOX [Concomitant]
     Active Substance: ONABOTULINUMTOXINA
     Indication: Muscle spasticity

REACTIONS (19)
  - Clavicle fracture [Recovering/Resolving]
  - Peroneal nerve palsy [Recovering/Resolving]
  - Rib fracture [Recovering/Resolving]
  - Upper limb fracture [Recovering/Resolving]
  - Pelvic fracture [Recovering/Resolving]
  - Road traffic accident [Unknown]
  - Muscle spasticity [Recovering/Resolving]
  - Multiple sclerosis [Not Recovered/Not Resolved]
  - Fatigue [Recovered/Resolved]
  - Nasopharyngitis [Recovered/Resolved]
  - Balance disorder [Recovered/Resolved]
  - Neck pain [Not Recovered/Not Resolved]
  - Arthralgia [Not Recovered/Not Resolved]
  - Headache [Not Recovered/Not Resolved]
  - Swelling face [Recovered/Resolved]
  - Erythema [Recovered/Resolved]
  - Liver function test increased [Not Recovered/Not Resolved]
  - Initial insomnia [Recovered/Resolved]
  - Asthenia [Recovered/Resolved]

NARRATIVE: CASE EVENT DATE: 20180222
